FAERS Safety Report 11943432 (Version 1)
Quarter: 2016Q1

REPORT INFORMATION
  Report Type: Spontaneous
  Country: US (occurrence: US)
  Receive Date: 20160125
  Receipt Date: 20160125
  Transmission Date: 20160526
  Serious: No
  Sender: FDA-Public Use
  Company Number: US-UNITED THERAPEUTICS-UNT-2015-012119

PATIENT
  Age: 81 Year
  Sex: Male
  Weight: 89.34 kg

DRUGS (2)
  1. TYVASO [Suspect]
     Active Substance: TREPROSTINIL
     Dosage: UNK
  2. TYVASO [Suspect]
     Active Substance: TREPROSTINIL
     Indication: PULMONARY ARTERIAL HYPERTENSION
     Dosage: 18-72 MICROGRAMS, QID
     Dates: start: 20150914

REACTIONS (9)
  - Nasopharyngitis [Unknown]
  - Somnolence [Unknown]
  - Sneezing [Unknown]
  - Headache [Unknown]
  - Seasonal allergy [Unknown]
  - Flushing [Recovered/Resolved]
  - Cough [Unknown]
  - Dizziness [Recovered/Resolved]
  - Fatigue [Unknown]

NARRATIVE: CASE EVENT DATE: 201509
